FAERS Safety Report 7990757-5 (Version None)
Quarter: 2011Q4

REPORT INFORMATION
  Report Type: 
  Country: None (occurrence: None)
  Receive Date: 20111219
  Receipt Date: 20111219
  Transmission Date: 20120403
  Serious: No
  Sender: FDA-Public Use
  Company Number: None

PATIENT
  Weight: 102.05 kg

DRUGS (2)
  1. BECONASE [Concomitant]
     Indication: MULTIPLE ALLERGIES
     Route: 045
     Dates: start: 19900101, end: 20000101
  2. NASALIDE [Suspect]
     Indication: MULTIPLE ALLERGIES
     Route: 045
     Dates: start: 19850101, end: 19900101

REACTIONS (1)
  - OSTEONECROSIS [None]
